FAERS Safety Report 21693941 (Version 1)
Quarter: 2022Q4

REPORT INFORMATION
  Report Type: Spontaneous
  Country: US (occurrence: None)
  Receive Date: 20221206
  Receipt Date: 20221206
  Transmission Date: 20230112
  Serious: Yes (Other)
  Sender: FDA-Public Use
  Company Number: None

PATIENT
  Age: 32 Year
  Sex: Female
  Weight: 42.75 kg

DRUGS (4)
  1. FINACEA [Suspect]
     Active Substance: AZELAIC ACID
     Indication: Acne
     Dosage: FREQUENCY : DAILY;?
     Route: 061
     Dates: end: 20210207
  2. EXCEDRIN MIGRAINE [Concomitant]
     Active Substance: ACETAMINOPHEN\ASPIRIN\CAFFEINE
  3. IUD NOS [Concomitant]
     Active Substance: COPPER OR LEVONORGESTREL
  4. MIRALAX [Concomitant]
     Active Substance: POLYETHYLENE GLYCOL 3350

REACTIONS (3)
  - Acne [None]
  - Skin discolouration [None]
  - Scar [None]

NARRATIVE: CASE EVENT DATE: 20191001
